FAERS Safety Report 9597367 (Version 1)
Quarter: 2013Q4

REPORT INFORMATION
  Report Type: Spontaneous
  Country: US (occurrence: US)
  Receive Date: 20131004
  Receipt Date: 20131004
  Transmission Date: 20140711
  Serious: No
  Sender: FDA-Public Use
  Company Number: US-AMGEN-USASP2013018279

PATIENT
  Age: 66 Year
  Sex: Female
  Weight: 51.25 kg

DRUGS (9)
  1. ENBREL [Suspect]
     Indication: PRODUCT USED FOR UNKNOWN INDICATION
     Dosage: 25 MG, 2 TIMES/WK
     Route: 058
  2. METHOTREXATE [Concomitant]
     Dosage: UNK
  3. LEUCOVORIN                         /00566701/ [Concomitant]
     Dosage: UNK
  4. PEPCID                             /00706001/ [Concomitant]
     Dosage: UNK
  5. MULTIVITAMINS, PLAIN [Concomitant]
     Dosage: UNK
  6. VITAMIN D                          /00107901/ [Concomitant]
     Dosage: 1000 UNIT, UNK
  7. MELOXICAM [Concomitant]
     Dosage: 7.5 MG, UNK
  8. TUMS                               /07357001/ [Concomitant]
     Dosage: 500 MG, UNK
  9. ATIVAN [Concomitant]
     Dosage: 1 MG, UNK

REACTIONS (1)
  - Injection site pain [Unknown]
